FAERS Safety Report 8493063 (Version 2)
Quarter: 2013Q2

REPORT INFORMATION
  Report Type: Report from Study
  Country: MX (occurrence: MX)
  Receive Date: 20120404
  Receipt Date: 20130424
  Transmission Date: 20140414
  Serious: Yes (Death)
  Sender: FDA-Public Use
  Company Number: PHHY2012MX027926

PATIENT
  Age: 92 Year
  Sex: Male

DRUGS (6)
  1. EXELON PATCH [Suspect]
     Indication: DEMENTIA ALZHEIMER^S TYPE
     Dosage: 5CM2/ 4.6 MG PATCH DAILY
     Route: 062
     Dates: end: 201201
  2. CALCORT [Concomitant]
     Dosage: 1 DF, QD
     Dates: start: 2009, end: 201201
  3. DIACEREIN [Concomitant]
     Dosage: 1 DF, QD
     Dates: start: 2008, end: 201201
  4. OGASTRO [Concomitant]
     Dosage: 1 DF, QD
     Dates: start: 201110, end: 201201
  5. CONTUMAX [Concomitant]
     Dosage: 1 DF, QD
     Dates: start: 2010, end: 201201
  6. CINITAPRIDE [Concomitant]
     Dosage: 9 DF, QD
     Dates: start: 2008, end: 201201

REACTIONS (1)
  - Asphyxia [Fatal]
